FAERS Safety Report 6074410-3 (Version None)
Quarter: 2009Q1

REPORT INFORMATION
  Report Type: 
  Country: None (occurrence: None)
  Receive Date: 20090206
  Receipt Date: 20090126
  Transmission Date: 20090719
  Serious: Yes (Death, Hospitalization)
  Sender: FDA-Public Use
  Company Number: GXKR2009GB01143

PATIENT
  Age: 90 Year
  Sex: Female

DRUGS (6)
  1. OMEPRAZOLE [Suspect]
     Dosage: 20 MG QD; 40 MG QD
     Dates: end: 20080813
  2. OMEPRAZOLE [Suspect]
     Dosage: 20 MG QD; 40 MG QD
     Dates: start: 20080813, end: 20080826
  3. TRIFLUOPERAZINE                                (TRIFLUOPERAZINE) UNKNO [Suspect]
     Dosage: 1 MG QID
     Dates: end: 20080828
  4. ATENOLOL [Concomitant]
  5. ENALAPRIL MALEATE [Concomitant]
  6. FERROUS SULFATE TAB [Concomitant]

REACTIONS (4)
  - ACUTE HEPATIC FAILURE [None]
  - DYSPHAGIA [None]
  - HEPATIC ENCEPHALOPATHY [None]
  - HEPATIC NECROSIS [None]
